FAERS Safety Report 17283433 (Version 1)
Quarter: 2020Q1

REPORT INFORMATION
  Report Type: Spontaneous
  Country: IT (occurrence: IT)
  Receive Date: 20200117
  Receipt Date: 20200117
  Transmission Date: 20200409
  Serious: Yes (Other)
  Sender: FDA-Public Use
  Company Number: IT-PFIZER INC-2020019777

PATIENT
  Age: 85 Year
  Sex: Female

DRUGS (5)
  1. HALCION [Suspect]
     Active Substance: TRIAZOLAM
     Dosage: 11 DF, SINGLE
     Route: 048
     Dates: start: 20190526, end: 20190526
  2. LANSOX [Concomitant]
     Active Substance: LANSOPRAZOLE
     Dosage: UNK
  3. CARDIOASPIRIN [Concomitant]
     Active Substance: ASPIRIN
     Dosage: UNK
  4. RANEXA [Concomitant]
     Active Substance: RANOLAZINE
     Dosage: UNK
  5. BLOPRESID [Concomitant]
     Active Substance: CANDESARTAN CILEXETIL\HYDROCHLOROTHIAZIDE
     Dosage: UNK

REACTIONS (2)
  - Sopor [Recovering/Resolving]
  - Drug abuse [Recovering/Resolving]

NARRATIVE: CASE EVENT DATE: 20190526
